FAERS Safety Report 9001507 (Version 1)
Quarter: 2013Q1

REPORT INFORMATION
  Report Type: Spontaneous
  Country: IT (occurrence: IT)
  Receive Date: 20130107
  Receipt Date: 20130107
  Transmission Date: 20140127
  Serious: Yes (Hospitalization)
  Sender: FDA-Public Use
  Company Number: IT-BAYER-2013-001606

PATIENT
  Age: 75 Year
  Sex: Male

DRUGS (1)
  1. ACETYLSALICYLIC ACID({=100 MG) [Suspect]
     Indication: CORONARY ARTERY DISEASE
     Dosage: 75 MG

REACTIONS (2)
  - Acquired haemophilia [None]
  - Haematoma [None]
